FAERS Safety Report 5109307-6 (Version None)
Quarter: 2006Q3

REPORT INFORMATION
  Report Type: 
  Country: None (occurrence: None)
  Receive Date: 20060920
  Receipt Date: 20060919
  Transmission Date: 20061208
  Serious: Yes (Congenital Anomaly)
  Sender: FDA-Public Use
  Company Number: US-GLAXOSMITHKLINE-A0620720A

PATIENT

DRUGS (1)
  1. PAXIL [Suspect]

REACTIONS (4)
  - ATRIAL SEPTAL DEFECT [None]
  - CONGENITAL ANOMALY [None]
  - DRUG EXPOSURE DURING PREGNANCY [None]
  - VENTRICULAR SEPTAL DEFECT [None]
